FAERS Safety Report 9295138 (Version 1)
Quarter: 2013Q2

REPORT INFORMATION
  Report Type: Spontaneous
  Country: US (occurrence: None)
  Receive Date: 20130516
  Receipt Date: 20130516
  Transmission Date: 20140414
  Serious: Yes (Hospitalization, Disabling)
  Sender: FDA-Public Use
  Company Number: None

PATIENT
  Age: 74 Year
  Sex: Female
  Weight: 58.97 kg

DRUGS (1)
  1. MEDTRONIC 5086 MRI LEADS [Suspect]

REACTIONS (3)
  - Cardiac perforation [None]
  - Medical device complication [None]
  - Product quality issue [None]
